FAERS Safety Report 9617084 (Version 1)
Quarter: 2013Q4

REPORT INFORMATION
  Report Type: Not Available
  Country: US (occurrence: US)
  Receive Date: 20131011
  Receipt Date: 20131011
  Transmission Date: 20140711
  Serious: No
  Sender: FDA-Public Use
  Company Number: US-TARO-2012P1059440

PATIENT
  Age: 6 Year
  Sex: Male
  Weight: 24.95 kg

DRUGS (4)
  1. LORATADINE SYRUP (LORATADINE ORAL SOLUTION USP) 5MG/5ML [Suspect]
     Route: 048
     Dates: start: 20120918, end: 20120919
  2. LORATADINE SYRUP (LORATADINE ORAL SOLUTION USP) 5MG/5ML [Suspect]
     Dates: start: 20120920
  3. OMNICEF (CEFDINIR) [Concomitant]
     Dates: start: 20120918
  4. MELATONIN [Concomitant]

REACTIONS (2)
  - Pruritus generalised [Recovered/Resolved]
  - Excoriation [Recovered/Resolved]
